FAERS Safety Report 4714764-0 (Version None)
Quarter: 2005Q3

REPORT INFORMATION
  Report Type: 
  Country: None (occurrence: None)
  Receive Date: 20050713
  Receipt Date: 20050630
  Transmission Date: 20060218
  Serious: Yes (Death)
  Sender: FDA-Public Use
  Company Number: 2005PV000171

PATIENT
  Age: 64 Year
  Sex: Male
  Weight: 76.2043 kg

DRUGS (7)
  1. BYETTA [Suspect]
     Indication: DIABETES MELLITUS NON-INSULIN-DEPENDENT
     Dosage: 5 UG; BID; SC
     Route: 058
     Dates: start: 20050609
  2. GLUCOPHAGE [Concomitant]
  3. ASPIRIN [Concomitant]
  4. TRICOR [Concomitant]
  5. HYDROCHLOROTHIAZIDE [Concomitant]
  6. NEXIUM [Concomitant]
  7. LANTUS [Concomitant]

REACTIONS (1)
  - DEATH [None]
